FAERS Safety Report 16031268 (Version 2)
Quarter: 2019Q2

REPORT INFORMATION
  Report Type: Spontaneous
  Country: BR (occurrence: BR)
  Receive Date: 20190304
  Receipt Date: 20190403
  Transmission Date: 20190711
  Serious: Yes (Other)
  Sender: FDA-Public Use
  Company Number: BR-BAUSCH-BL-2019-006356

PATIENT
  Age: 17 Year
  Sex: Male

DRUGS (18)
  1. AZATHIOPRINE. [Suspect]
     Active Substance: AZATHIOPRINE
     Indication: COLITIS ULCERATIVE
     Route: 048
     Dates: start: 201107
  2. AZATHIOPRINE. [Suspect]
     Active Substance: AZATHIOPRINE
     Route: 048
     Dates: start: 201112
  3. AZATHIOPRINE. [Suspect]
     Active Substance: AZATHIOPRINE
     Route: 048
     Dates: start: 201505
  4. INFLIXIMAB [Suspect]
     Active Substance: INFLIXIMAB
     Indication: COLITIS ULCERATIVE
     Dosage: 5-10 MG/KG; 8/8 WEEKS
     Route: 042
     Dates: start: 2012, end: 2014
  5. PREDNISONE. [Concomitant]
     Active Substance: PREDNISONE
     Dates: start: 201112
  6. AZATHIOPRINE. [Suspect]
     Active Substance: AZATHIOPRINE
     Route: 048
     Dates: start: 201603
  7. AZATHIOPRINE. [Suspect]
     Active Substance: AZATHIOPRINE
     Route: 048
     Dates: start: 201608
  8. PREDNISONE. [Concomitant]
     Active Substance: PREDNISONE
     Dosage: 15-40 MG/DAY
     Dates: start: 201506
  9. PREDNISONE. [Concomitant]
     Active Substance: PREDNISONE
     Dates: start: 201601
  10. MESALAZINE [Suspect]
     Active Substance: MESALAMINE
     Indication: COLITIS ULCERATIVE
     Route: 048
     Dates: start: 201112, end: 201206
  11. AZATHIOPRINE. [Suspect]
     Active Substance: AZATHIOPRINE
     Route: 048
     Dates: start: 201601
  12. PREDNISONE. [Concomitant]
     Active Substance: PREDNISONE
     Dosage: 30-60 MG/DAY
     Dates: start: 2012, end: 2014
  13. PREDNISONE. [Concomitant]
     Active Substance: PREDNISONE
     Dosage: 20-30 MG/DAY
     Dates: start: 201603
  14. PREDNISONE. [Concomitant]
     Active Substance: PREDNISONE
     Dates: start: 201505
  15. PREDNISONE. [Concomitant]
     Active Substance: PREDNISONE
     Indication: AUTOIMMUNE HEPATITIS
     Dates: start: 201107
  16. PREDNISONE. [Concomitant]
     Active Substance: PREDNISONE
     Dosage: 30-60 MG/DAY
     Dates: start: 201608
  17. AZATHIOPRINE. [Suspect]
     Active Substance: AZATHIOPRINE
     Route: 048
     Dates: start: 2012, end: 2014
  18. AZATHIOPRINE. [Suspect]
     Active Substance: AZATHIOPRINE
     Route: 048
     Dates: start: 201506

REACTIONS (1)
  - Treatment failure [Unknown]
